FAERS Safety Report 23840742 (Version 1)
Quarter: 2024Q2

REPORT INFORMATION
  Report Type: Spontaneous
  Country: SE (occurrence: SE)
  Receive Date: 20240510
  Receipt Date: 20240510
  Transmission Date: 20240715
  Serious: Yes (Hospitalization, Other)
  Sender: FDA-Public Use
  Company Number: None

PATIENT
  Age: 59 Year
  Sex: Male

DRUGS (15)
  1. ATORVASTATIN [Suspect]
     Active Substance: ATORVASTATIN
     Indication: Product used for unknown indication
     Dosage: STRENGTH: 40 MG, 1X1
     Dates: start: 20191017, end: 20240308
  2. METOPROLOL [Concomitant]
     Active Substance: METOPROLOL
     Dosage: 1X1, STRENGTH: 39.04 MG
  3. FINASTERIDE [Concomitant]
     Active Substance: FINASTERIDE
     Dosage: 1X1, STRENGTH: 5 MG
  4. OMEPRAZOLE [Concomitant]
     Active Substance: DONEPEZIL HYDROCHLORIDE\OMEPRAZOLE\OMEPRAZOLE MAGNESIUM
     Dosage: 1X1, STRENGTH: 20 MG
  5. ELIQUIS [Concomitant]
     Active Substance: APIXABAN
     Dosage: 1X2, STRENGTH: 5 MG
  6. DESLORATADINE [Concomitant]
     Active Substance: DESLORATADINE
     Dosage: STRENGTH: 5 MG, 1 AS REQUIRED
  7. ALFUZOSIN [Concomitant]
     Active Substance: ALFUZOSIN
     Dosage: STRENGTH: 9.14 MG, 1X1
  8. PROPYLESS [Concomitant]
     Dosage: STRENGTH: 200, AS REQUIRED
  9. CALCIUM CARBONATE\CHOLECALCIFEROL [Concomitant]
     Active Substance: CALCIUM CARBONATE\CHOLECALCIFEROL
     Dosage: 1X1
  10. LOMUDAL [Concomitant]
     Dosage: 1 AS REQUIRED, STRENGTH: CROMOGLYCINIC ACID-18.28, SODIUM CROMOGLYCATE-20
  11. MOVICOL [Concomitant]
     Active Substance: POLYETHYLENE GLYCOL 3350\POTASSIUM CHLORIDE\SODIUM BICARBONATE\SODIUM CHLORIDE
     Dosage: 1 AS REQUIRED, POWDER FOR ORAL SOLUTION IN SACHET
  12. BENZOYL PEROXIDE [Concomitant]
     Active Substance: BENZOYL PEROXIDE
     Dosage: 1X1
  13. HYDROCORTISONE\MICONAZOLE NITRATE [Concomitant]
     Active Substance: HYDROCORTISONE\MICONAZOLE NITRATE
     Dosage: 1X2
  14. ZOPICLONE [Concomitant]
     Active Substance: ZOPICLONE
     Dosage: 1 AS REQUIRED, STRENGTH: 7.5 MG
  15. OTRIVIN [Concomitant]
     Active Substance: XYLOMETAZOLINE
     Dosage: 1 AS REQUIRED

REACTIONS (7)
  - Fatigue [Unknown]
  - Alanine aminotransferase increased [Unknown]
  - Necrotising myositis [Not Recovered/Not Resolved]
  - Aspartate aminotransferase increased [Unknown]
  - Musculoskeletal stiffness [Unknown]
  - Decreased appetite [Unknown]
  - Night sweats [Unknown]

NARRATIVE: CASE EVENT DATE: 20240101
